FAERS Safety Report 6906148-1 (Version None)
Quarter: 2010Q3

REPORT INFORMATION
  Report Type: 
  Country: None (occurrence: None)
  Receive Date: 20100803
  Receipt Date: 20100803
  Transmission Date: 20110219
  Serious: Yes (Death)
  Sender: FDA-Public Use
  Company Number: None

PATIENT
  Age: 78 Year
  Sex: Female
  Weight: 81.6475 kg

DRUGS (1)
  1. RECLAST [Suspect]
     Indication: OSTEOPOROSIS
     Dosage: ONCE YEARLY IV
     Route: 042
     Dates: start: 20100630, end: 20100630

REACTIONS (10)
  - CHILLS [None]
  - FEELING ABNORMAL [None]
  - LEUKAEMIA [None]
  - LYMPHOMA [None]
  - NO THERAPEUTIC RESPONSE [None]
  - PAIN [None]
  - PYREXIA [None]
  - SOMNOLENCE [None]
  - VESSEL PUNCTURE SITE HAEMATOMA [None]
  - VOMITING [None]
